FAERS Safety Report 4530233-5 (Version None)
Quarter: 2004Q4

REPORT INFORMATION
  Report Type: 
  Country: None (occurrence: None)
  Receive Date: 20041216
  Receipt Date: 20041216
  Transmission Date: 20050328
  Serious: No
  Sender: FDA-Public Use
  Company Number: None

PATIENT
  Age: 60 Year
  Sex: Male
  Weight: 109 kg

DRUGS (15)
  1. WARFARIN [Suspect]
     Indication: ATRIAL FIBRILLATION
     Dosage: 7.5MG PO QD
     Route: 048
     Dates: start: 20030919
  2. ATENOLOL [Concomitant]
  3. CITALOPRAM [Concomitant]
  4. CLONAZEPAM [Concomitant]
  5. FOLIC ACID [Concomitant]
  6. FUROSEMIDE [Concomitant]
  7. HYDROCORTISONE CR [Concomitant]
  8. MULTI-VITAMIN [Concomitant]
  9. POTASSIUM CHLORIDE [Concomitant]
  10. RANITIDINE [Concomitant]
  11. SILDENAFIL [Concomitant]
  12. TERBINAFINE HCL [Concomitant]
  13. THIAMINE [Concomitant]
  14. TRAZODONE HCL [Concomitant]
  15. LINEZOLID [Concomitant]

REACTIONS (4)
  - HAEMATURIA [None]
  - HAEMORRHAGE [None]
  - INTERNATIONAL NORMALISED RATIO INCREASED [None]
  - SKIN LACERATION [None]
